FAERS Safety Report 4296735-4 (Version None)
Quarter: 2004Q1

REPORT INFORMATION
  Report Type: 
  Country: None (occurrence: None)
  Receive Date: 20040126
  Receipt Date: 20030904
  Transmission Date: 20041129
  Serious: No
  Sender: FDA-Public Use
  Company Number: USA030946288

PATIENT
  Age: 10 Year
  Sex: Male
  Weight: 29 kg

DRUGS (2)
  1. STRATTERA [Suspect]
     Indication: ATTENTION DEFICIT/HYPERACTIVITY DISORDER
     Dosage: 40 MG/DAY
     Dates: start: 20030830
  2. CONCERTA [Concomitant]

REACTIONS (5)
  - ABNORMAL BEHAVIOUR [None]
  - EXCITABILITY [None]
  - FATIGUE [None]
  - LOGORRHOEA [None]
  - NERVOUSNESS [None]
